FAERS Safety Report 21017510 (Version 2)
Quarter: 2024Q2

REPORT INFORMATION
  Report Type: Spontaneous
  Country: US (occurrence: US)
  Receive Date: 20220628
  Receipt Date: 20240404
  Transmission Date: 20240716
  Serious: No
  Sender: FDA-Public Use
  Company Number: US-MYLANLABS-2022M1046585

PATIENT
  Age: 74 Year
  Sex: Female
  Weight: 56.69 kg

DRUGS (2)
  1. RIMSO-50 [Suspect]
     Active Substance: DIMETHYL SULFOXIDE
     Indication: Cystitis interstitial
     Dosage: 50 MILLILITRE
     Route: 043
     Dates: start: 20220602
  2. RIMSO-50 [Suspect]
     Active Substance: DIMETHYL SULFOXIDE
     Dosage: UNK
     Route: 065
     Dates: start: 20240312

REACTIONS (2)
  - Drug ineffective [Unknown]
  - Breath odour [Not Recovered/Not Resolved]

NARRATIVE: CASE EVENT DATE: 20220601
